FAERS Safety Report 7565957-9 (Version None)
Quarter: 2011Q2

REPORT INFORMATION
  Report Type: 
  Country: None (occurrence: None)
  Receive Date: 20110623
  Receipt Date: 20101231
  Transmission Date: 20111010
  Serious: Yes (Disabling)
  Sender: FDA-Public Use
  Company Number: US-MUTUAL PHARMACEUTICAL COMPANY, INC.-MTCP20110001

PATIENT
  Sex: Female

DRUGS (2)
  1. REGLAN [Suspect]
     Indication: GASTROINTESTINAL DISORDER
     Route: 065
     Dates: start: 20000401, end: 20090501
  2. METOCLOPRAMIDE [Suspect]
     Indication: GASTROINTESTINAL DISORDER
     Route: 065
     Dates: start: 20000401, end: 20090501

REACTIONS (1)
  - EXTRAPYRAMIDAL DISORDER [None]
